FAERS Safety Report 9427687 (Version 1)
Quarter: 2013Q3

REPORT INFORMATION
  Report Type: Spontaneous
  Country: US (occurrence: None)
  Receive Date: 20130729
  Receipt Date: 20130729
  Transmission Date: 20140515
  Serious: No
  Sender: FDA-Public Use
  Company Number: None

PATIENT
  Age: 69 None
  Sex: Female

DRUGS (15)
  1. PRISTIQ [Suspect]
     Indication: DEPRESSION
     Dosage: 135 PILLS 1 DAILY BY MOUTH
     Route: 048
     Dates: start: 20100727, end: 20130629
  2. SIMVASTATIN [Concomitant]
  3. LOSARTAN [Concomitant]
  4. LORAZEPAM [Concomitant]
  5. ZOLPIDEM [Concomitant]
  6. BENADRYL [Concomitant]
  7. VITAMIN D 3 [Concomitant]
  8. COQ-10 [Concomitant]
  9. DR. CHRISTOPHERS HERBAL CALCIUM [Concomitant]
  10. SIMVASTATIN [Concomitant]
  11. LOSARTAN [Concomitant]
  12. LORAZEPAM [Concomitant]
  13. ZOLPIDEM [Concomitant]
  14. BENEDRYL [Concomitant]
  15. D-3 2000 IU [Concomitant]

REACTIONS (10)
  - Malaise [None]
  - Asthenia [None]
  - Dizziness [None]
  - Nausea [None]
  - Frequent bowel movements [None]
  - Sensory disturbance [None]
  - Sleep disorder [None]
  - Weight decreased [None]
  - Vomiting [None]
  - Therapy cessation [None]
